FAERS Safety Report 20103398 (Version 1)
Quarter: 2021Q4

REPORT INFORMATION
  Report Type: Spontaneous
  Country: JP (occurrence: JP)
  Receive Date: 20211123
  Receipt Date: 20211123
  Transmission Date: 20220304
  Serious: Yes (Other)
  Sender: FDA-Public Use
  Company Number: JP-ONO-2021JP022116

PATIENT

DRUGS (9)
  1. ONGENTYS [Suspect]
     Active Substance: OPICAPONE
     Indication: Parkinson^s disease
     Dosage: UNK, UNKNOWN
     Route: 048
  2. ONGENTYS [Suspect]
     Active Substance: OPICAPONE
     Dosage: UNKNOWN, DAILY (EVERYDAY AT NIGHT)
     Route: 048
     Dates: start: 20210903, end: 20210928
  3. ONGENTYS [Suspect]
     Active Substance: OPICAPONE
     Dosage: UNKNOWN
     Route: 065
  4. SYMMETREL [Concomitant]
     Active Substance: AMANTADINE HYDROCHLORIDE
     Dosage: UNK
  5. COMTAN [Concomitant]
     Active Substance: ENTACAPONE
     Dosage: UNK
  6. BENSERAZIDE HYDROCHLORIDE\LEVODOPA [Concomitant]
     Active Substance: BENSERAZIDE HYDROCHLORIDE\LEVODOPA
     Dosage: 4.5 DOSAGE FORM, DAILY
     Route: 048
  7. BENSERAZIDE HYDROCHLORIDE\LEVODOPA [Concomitant]
     Active Substance: BENSERAZIDE HYDROCHLORIDE\LEVODOPA
     Dosage: 3 DOSAGE FORM, DAILY
     Route: 048
  8. SAFINAMIDE MESYLATE [Concomitant]
     Active Substance: SAFINAMIDE MESYLATE
     Dosage: UNKNOWN
     Route: 065
  9. NEUPRO [Concomitant]
     Active Substance: ROTIGOTINE
     Dosage: UNK
     Dates: end: 2021

REACTIONS (8)
  - Akinesia [Unknown]
  - Freezing phenomenon [Unknown]
  - Gait inability [Unknown]
  - Irritability [Unknown]
  - Musculoskeletal stiffness [Unknown]
  - Spinal osteoarthritis [Unknown]
  - Dyskinesia [Recovering/Resolving]
  - Treatment noncompliance [Unknown]
